FAERS Safety Report 8517093-2 (Version None)
Quarter: 2012Q3

REPORT INFORMATION
  Report Type: 
  Country: None (occurrence: None)
  Receive Date: 20120718
  Receipt Date: 20120716
  Transmission Date: 20120928
  Serious: Yes (Other)
  Sender: FDA-Public Use
  Company Number: DE-PFIZER INC-2012170460

PATIENT
  Age: 72 Year
  Sex: Male

DRUGS (6)
  1. VARENICLINE TARTRATE [Suspect]
     Dosage: 1 MG, 2X/DAY
     Dates: start: 20070720
  2. VARENICLINE TARTRATE [Suspect]
     Dosage: 1 TABLET
  3. ASPIRIN [Concomitant]
     Indication: ANTICOAGULANT THERAPY
     Dosage: UNK
  4. VARENICLINE TARTRATE [Suspect]
     Indication: SMOKING CESSATION THERAPY
     Dosage: 0.5 MG, UNK
     Dates: start: 20070713, end: 20070715
  5. VARENICLINE TARTRATE [Suspect]
     Dosage: UNK
     Dates: start: 20070716, end: 20070719
  6. INSULIN [Concomitant]
     Dosage: UNK

REACTIONS (4)
  - MEDICATION ERROR [None]
  - MALAISE [None]
  - ABDOMINAL PAIN [None]
  - BLOOD GLUCOSE INCREASED [None]
